FAERS Safety Report 9374908 (Version 2)
Quarter: 2013Q3

REPORT INFORMATION
  Report Type: Spontaneous
  Country: US (occurrence: US)
  Receive Date: 20130628
  Receipt Date: 20130705
  Transmission Date: 20140515
  Serious: Yes (Hospitalization, Other)
  Sender: FDA-Public Use
  Company Number: US-ASTRAZENECA-2013SE49131

PATIENT
  Age: 54 Year
  Sex: Male
  Weight: 72.6 kg

DRUGS (3)
  1. SEROQUEL [Suspect]
     Indication: ANTIDEPRESSANT THERAPY
     Route: 048
  2. SEROQUEL [Suspect]
     Indication: BIPOLAR DISORDER
     Route: 048
  3. EFFEXOR [Suspect]
     Route: 065

REACTIONS (11)
  - Depression [Unknown]
  - Mania [Unknown]
  - Allergy to arthropod sting [Unknown]
  - Insomnia [Unknown]
  - Verbigeration [Unknown]
  - Mental disorder [Unknown]
  - Stupor [Unknown]
  - Mental impairment [Unknown]
  - Mood altered [Unknown]
  - Muscle twitching [Unknown]
  - Drug ineffective [Unknown]
